FAERS Safety Report 9396422 (Version 1)
Quarter: 2013Q3

REPORT INFORMATION
  Report Type: Spontaneous
  Country: FR (occurrence: FR)
  Receive Date: 20130711
  Receipt Date: 20130711
  Transmission Date: 20140515
  Serious: Yes (Other)
  Sender: FDA-Public Use
  Company Number: FR-NICOBRDEVP-2013-11853

PATIENT
  Sex: 0

DRUGS (4)
  1. NICARDIPINE (UNKNOWN) [Suspect]
     Indication: PRE-ECLAMPSIA
     Dosage: 3 MG, Q1H
     Route: 064
  2. MAGNESIUM (UNKNOWN) [Suspect]
     Indication: PRE-ECLAMPSIA
     Dosage: 3 G, SINGLE
     Route: 064
  3. BETAMETHASONE (UNKNOWN) [Suspect]
     Indication: PRODUCT USED FOR UNKNOWN INDICATION
     Dosage: UNK
     Route: 064
  4. EPHEDRINE (UNKNOWN) [Suspect]
     Indication: CIRCULATORY COLLAPSE
     Dosage: UNK
     Route: 064

REACTIONS (2)
  - Bradycardia foetal [Unknown]
  - Foetal exposure during pregnancy [Unknown]
